FAERS Safety Report 7261781-5 (Version None)
Quarter: 2011Q1

REPORT INFORMATION
  Report Type: 
  Country: None (occurrence: None)
  Receive Date: 20110102
  Receipt Date: 20110104
  Transmission Date: 20110831
  Serious: Yes (Death, Other)
  Sender: FDA-Public Use
  Company Number: 2011000079

PATIENT
  Age: 63 Year
  Sex: Female

DRUGS (6)
  1. TARCEVA [Suspect]
     Indication: LUNG CARCINOMA CELL TYPE UNSPECIFIED STAGE IV
     Dosage: ORAL
     Route: 048
     Dates: end: 20100429
  2. CARBOPLATIN [Concomitant]
  3. AVASTIN [Suspect]
     Indication: LUNG CARCINOMA CELL TYPE UNSPECIFIED STAGE 0
     Dosage: Q 3 WEEKS
     Dates: start: 20081219
  4. TAXOL [Concomitant]
  5. ZOMETA [Concomitant]
  6. GEMZAR [Concomitant]

REACTIONS (1)
  - ANAEMIA [None]
